FAERS Safety Report 23428342 (Version 1)
Quarter: 2024Q1

REPORT INFORMATION
  Report Type: Spontaneous
  Country: PL (occurrence: PL)
  Receive Date: 20240122
  Receipt Date: 20240122
  Transmission Date: 20240410
  Serious: Yes (Life-Threatening)
  Sender: FDA-Public Use
  Company Number: None

PATIENT
  Age: 53 Year
  Sex: Female

DRUGS (3)
  1. DYMISTA [Suspect]
     Active Substance: AZELASTINE HYDROCHLORIDE\FLUTICASONE PROPIONATE
     Indication: Rhinitis allergic
     Dosage: UNK
     Route: 045
     Dates: start: 20190417, end: 20190417
  2. XARELTO [Concomitant]
     Active Substance: RIVAROXABAN
     Dosage: 1 DOSAGE FORM, QD (15; USED CONSTANTLY)
     Route: 048
  3. RAMIPRIL [Concomitant]
     Active Substance: RAMIPRIL
     Dosage: 1 DOSAGE FORM, QD (5; USED CONSTANTLY)
     Route: 048

REACTIONS (5)
  - Lacrimation increased [Unknown]
  - Arrhythmia [Unknown]
  - Palpitations [Unknown]
  - Headache [Unknown]
  - Sneezing [Unknown]

NARRATIVE: CASE EVENT DATE: 20190417
